FAERS Safety Report 25792334 (Version 1)
Quarter: 2025Q3

REPORT INFORMATION
  Report Type: Spontaneous
  Country: EU (occurrence: EU)
  Receive Date: 20250911
  Receipt Date: 20250911
  Transmission Date: 20251020
  Serious: Yes (Hospitalization, Other)
  Sender: PFIZER
  Company Number: EU-AUROBINDO-AUR-APL-2025-044595

PATIENT
  Age: 69 Year
  Sex: Male

DRUGS (8)
  1. CARBOPLATIN [Suspect]
     Active Substance: CARBOPLATIN
     Indication: Lung carcinoma cell type unspecified stage III
     Route: 042
     Dates: start: 20250709, end: 20250709
  2. CARBOPLATIN [Suspect]
     Active Substance: CARBOPLATIN
     Route: 042
     Dates: start: 20250806, end: 20250806
  3. PACLITAXEL [Suspect]
     Active Substance: PACLITAXEL
     Indication: Lung carcinoma cell type unspecified stage III
     Dosage: 299.25 MG, 1X/DAY
     Route: 042
     Dates: start: 20250709, end: 20250709
  4. PACLITAXEL [Suspect]
     Active Substance: PACLITAXEL
     Dosage: 295.75 MG, 1X/DAY
     Route: 042
     Dates: start: 20250806, end: 20250806
  5. NIVOLUMAB [Suspect]
     Active Substance: NIVOLUMAB
     Indication: Lung carcinoma cell type unspecified stage III
     Dosage: 360 MG, 1X/DAY
     Route: 042
     Dates: start: 20250709, end: 20250709
  6. NIVOLUMAB [Suspect]
     Active Substance: NIVOLUMAB
     Dosage: 360 MG, 1X/DAY
     Route: 042
     Dates: start: 20250806, end: 20250806
  7. DEXAMETHASONE [Concomitant]
     Active Substance: DEXAMETHASONE
     Indication: Allergy alert test
     Route: 065
     Dates: start: 20250709
  8. POLARAMINE [Concomitant]
     Active Substance: DEXCHLORPHENIRAMINE MALEATE
     Indication: Allergy alert test
     Route: 065
     Dates: start: 20250709

REACTIONS (9)
  - Type I hypersensitivity [Recovered/Resolved]
  - Chest discomfort [Recovered/Resolved]
  - Asphyxia [Recovered/Resolved]
  - Hyperhidrosis [Recovered/Resolved]
  - Tremor [Recovered/Resolved]
  - Speech disorder [Recovered/Resolved]
  - Dyspnoea [Recovered/Resolved]
  - Urticaria [Recovered/Resolved]
  - Erythema [Recovered/Resolved]

NARRATIVE: CASE EVENT DATE: 20250709
